FAERS Safety Report 9478342 (Version 6)
Quarter: 2013Q4

REPORT INFORMATION
  Report Type: Report from Study
  Country: US (occurrence: US)
  Receive Date: 20130827
  Receipt Date: 20131213
  Transmission Date: 20140711
  Serious: Yes (Other)
  Sender: FDA-Public Use
  Company Number: US-JNJFOC-20130812065

PATIENT
  Sex: Female

DRUGS (1)
  1. REMICADE [Suspect]
     Indication: RHEUMATOID ARTHRITIS
     Dosage: DOSE ALSO REPORTED AS 100MG/VIAL X 7
     Route: 042
     Dates: end: 20130827

REACTIONS (2)
  - Arthritis [Not Recovered/Not Resolved]
  - Rotator cuff syndrome [Recovered/Resolved]
